FAERS Safety Report 17286904 (Version 1)
Quarter: 2020Q1

REPORT INFORMATION
  Report Type: Spontaneous
  Country: IT (occurrence: IT)
  Receive Date: 20200120
  Receipt Date: 20200120
  Transmission Date: 20200409
  Serious: Yes (Life-Threatening)
  Sender: FDA-Public Use
  Company Number: IT-SA-2020SA013896

PATIENT
  Age: 77 Year
  Sex: Male

DRUGS (6)
  1. FLUTICASONE PROPIONATE;SALMETEROL XINAFOATE [Concomitant]
     Active Substance: FLUTICASONE PROPIONATE\SALMETEROL XINAFOATE
     Dosage: 2 DF
     Route: 055
  2. DIGOSSINA [Concomitant]
     Active Substance: DIGOXIN
     Dosage: 0.25 MG
     Route: 048
  3. PANTOPRAZOLE [Concomitant]
     Active Substance: PANTOPRAZOLE
     Dosage: 40 MG
     Route: 048
  4. CLEXANE T [Suspect]
     Active Substance: ENOXAPARIN SODIUM
     Indication: ATRIAL FIBRILLATION
     Dosage: 2 DF, QD
     Route: 058
  5. VALSARTAN. [Concomitant]
     Active Substance: VALSARTAN
     Dosage: 40 MG
     Route: 048
  6. FUROSEMIDE. [Concomitant]
     Active Substance: FUROSEMIDE
     Dosage: 25 MG
     Route: 048

REACTIONS (4)
  - Hypotension [Recovered/Resolved]
  - Rash erythematous [Recovered/Resolved]
  - Hyperhidrosis [Recovered/Resolved]
  - Rash [Recovered/Resolved]

NARRATIVE: CASE EVENT DATE: 20191219
